FAERS Safety Report 13127329 (Version 5)
Quarter: 2018Q3

REPORT INFORMATION
  Report Type: Report from Study
  Country: KR (occurrence: KR)
  Receive Date: 20170118
  Receipt Date: 20180703
  Transmission Date: 20181010
  Serious: Yes (Hospitalization)
  Sender: FDA-Public Use
  Company Number: KP-ASTRAZENECA-2017SE00901

PATIENT
  Age: 16165 Day
  Sex: Female

DRUGS (69)
  1. AZD6738 [Suspect]
     Active Substance: CERALASERTIB
     Indication: NEOPLASM
     Route: 048
     Dates: start: 20170505, end: 20170511
  2. AZD6738 [Suspect]
     Active Substance: CERALASERTIB
     Indication: NEOPLASM
     Route: 048
     Dates: start: 20170602, end: 20170608
  3. AZD6738 [Suspect]
     Active Substance: CERALASERTIB
     Indication: NEOPLASM
     Route: 048
     Dates: start: 20171130, end: 20171206
  4. AZD6738 [Suspect]
     Active Substance: CERALASERTIB
     Indication: NEOPLASM
     Route: 048
     Dates: start: 20180614, end: 20180620
  5. OLAPARIB. [Suspect]
     Active Substance: OLAPARIB
     Indication: NEOPLASM
     Route: 048
     Dates: start: 20170127, end: 20170127
  6. PHAZYME COMPLEX [Concomitant]
     Indication: ABDOMINAL PAIN
     Dosage: 1.0DF AS REQUIRED
     Route: 048
     Dates: start: 20161124
  7. POTASSIUM PHOSPHATE MONOBASIC [Concomitant]
     Active Substance: POTASSIUM PHOSPHATE, MONOBASIC
     Indication: HYPOKALAEMIA
     Route: 042
     Dates: start: 20170105, end: 20170105
  8. AZD6738 [Suspect]
     Active Substance: CERALASERTIB
     Indication: NEOPLASM
     Route: 048
     Dates: start: 20170728, end: 20170803
  9. AZD6738 [Suspect]
     Active Substance: CERALASERTIB
     Indication: NEOPLASM
     Route: 048
     Dates: start: 20180322, end: 20180328
  10. OLAPARIB. [Suspect]
     Active Substance: OLAPARIB
     Indication: NEOPLASM
     Route: 048
     Dates: start: 20170120, end: 20170124
  11. OLAPARIB. [Suspect]
     Active Substance: OLAPARIB
     Indication: NEOPLASM
     Route: 048
     Dates: start: 20170304, end: 20170309
  12. OLAPARIB. [Suspect]
     Active Substance: OLAPARIB
     Indication: NEOPLASM
     Route: 048
     Dates: start: 20170407, end: 20170504
  13. OLAPARIB. [Suspect]
     Active Substance: OLAPARIB
     Indication: NEOPLASM
     Route: 048
     Dates: start: 20170714, end: 20170714
  14. OLAPARIB. [Suspect]
     Active Substance: OLAPARIB
     Indication: NEOPLASM
     Route: 048
     Dates: start: 20170817, end: 20170824
  15. OLAPARIB. [Suspect]
     Active Substance: OLAPARIB
     Indication: NEOPLASM
     Route: 048
     Dates: start: 20171121, end: 20171129
  16. OLAPARIB. [Suspect]
     Active Substance: OLAPARIB
     Indication: NEOPLASM
     Route: 048
     Dates: start: 20171130, end: 20171227
  17. OLAPARIB. [Suspect]
     Active Substance: OLAPARIB
     Indication: NEOPLASM
     Route: 048
     Dates: start: 20180222, end: 20180321
  18. POTASSIUM CHLORIDE. [Concomitant]
     Active Substance: POTASSIUM CHLORIDE
     Indication: HYPOKALAEMIA
     Dosage: 40.0MEQ AS REQUIRED
     Route: 042
     Dates: start: 20170105, end: 20170311
  19. PROPACETAMOL [Concomitant]
     Active Substance: PROPACETAMOL
     Indication: ABDOMINAL PAIN
     Route: 042
     Dates: start: 20170103, end: 20170108
  20. GRASIN [Concomitant]
     Indication: FEBRILE NEUTROPENIA
     Dosage: 600.0UG AS REQUIRED
     Route: 058
     Dates: start: 20170104, end: 20170114
  21. NYSTATIN. [Concomitant]
     Active Substance: NYSTATIN
     Indication: STOMATITIS
     Dosage: 100.0ML AS REQUIRED
     Route: 002
     Dates: start: 20170105, end: 20170316
  22. OLAPARIB. [Suspect]
     Active Substance: OLAPARIB
     Indication: NEOPLASM
     Route: 048
     Dates: start: 20170126, end: 20170126
  23. OLAPARIB. [Suspect]
     Active Substance: OLAPARIB
     Indication: NEOPLASM
     Route: 048
     Dates: start: 20170303, end: 20170303
  24. OLAPARIB. [Suspect]
     Active Substance: OLAPARIB
     Indication: NEOPLASM
     Route: 048
     Dates: start: 20170523, end: 20170523
  25. OLAPARIB. [Suspect]
     Active Substance: OLAPARIB
     Indication: NEOPLASM
     Route: 048
     Dates: start: 20170715, end: 20170727
  26. OLAPARIB. [Suspect]
     Active Substance: OLAPARIB
     Indication: NEOPLASM
     Route: 048
     Dates: start: 20171102, end: 20171113
  27. OLAPARIB. [Suspect]
     Active Substance: OLAPARIB
     Indication: NEOPLASM
     Route: 048
     Dates: start: 20171228, end: 20180124
  28. PANTOPRAZOLE [Concomitant]
     Active Substance: PANTOPRAZOLE
     Indication: GASTROENTERITIS
     Route: 048
     Dates: start: 20161227, end: 20170103
  29. AZD6738 [Suspect]
     Active Substance: CERALASERTIB
     Indication: NEOPLASM
     Route: 048
     Dates: start: 20170825, end: 20170831
  30. AZD6738 [Suspect]
     Active Substance: CERALASERTIB
     Indication: NEOPLASM
     Route: 048
     Dates: start: 20171228, end: 20180103
  31. AZD6738 [Suspect]
     Active Substance: CERALASERTIB
     Indication: NEOPLASM
     Route: 048
     Dates: start: 20180222, end: 20180228
  32. AZD6738 [Suspect]
     Active Substance: CERALASERTIB
     Indication: NEOPLASM
     Route: 048
     Dates: start: 20180419, end: 20180425
  33. OLAPARIB. [Suspect]
     Active Substance: OLAPARIB
     Indication: NEOPLASM
     Route: 048
     Dates: start: 20161124, end: 20161221
  34. OLAPARIB. [Suspect]
     Active Substance: OLAPARIB
     Indication: NEOPLASM
     Route: 048
     Dates: start: 20170524, end: 20170601
  35. OLAPARIB. [Suspect]
     Active Substance: OLAPARIB
     Indication: NEOPLASM
     Route: 048
     Dates: start: 20180322, end: 20180418
  36. OLAPARIB. [Suspect]
     Active Substance: OLAPARIB
     Indication: NEOPLASM
     Route: 048
     Dates: start: 20180419, end: 20180516
  37. AZD6738 [Suspect]
     Active Substance: CERALASERTIB
     Indication: NEOPLASM
     Route: 048
     Dates: start: 20170922, end: 20170928
  38. AZD6738 [Suspect]
     Active Substance: CERALASERTIB
     Indication: NEOPLASM
     Route: 048
     Dates: start: 20171102, end: 20171108
  39. AZD6738 [Suspect]
     Active Substance: CERALASERTIB
     Indication: NEOPLASM
     Route: 048
     Dates: start: 20180517, end: 20180523
  40. OLAPARIB. [Suspect]
     Active Substance: OLAPARIB
     Indication: NEOPLASM
     Route: 048
     Dates: start: 20170202, end: 20170202
  41. OLAPARIB. [Suspect]
     Active Substance: OLAPARIB
     Indication: NEOPLASM
     Route: 048
     Dates: start: 20170216, end: 20170216
  42. OLAPARIB. [Suspect]
     Active Substance: OLAPARIB
     Indication: NEOPLASM
     Route: 048
     Dates: start: 20170602, end: 20170629
  43. OLAPARIB. [Suspect]
     Active Substance: OLAPARIB
     Indication: NEOPLASM
     Route: 048
     Dates: start: 20170712, end: 20170712
  44. OLAPARIB. [Suspect]
     Active Substance: OLAPARIB
     Indication: NEOPLASM
     Route: 048
     Dates: start: 20180125, end: 20180221
  45. HEPARIN SODIUM. [Concomitant]
     Active Substance: HEPARIN SODIUM
     Indication: THROMBOSIS PROPHYLAXIS
     Dosage: 10.0ML AS REQUIRED
     Route: 042
     Dates: start: 20161117
  46. AZD6738 [Suspect]
     Active Substance: CERALASERTIB
     Indication: NEOPLASM
     Route: 048
     Dates: start: 20161117, end: 20161117
  47. AZD6738 [Suspect]
     Active Substance: CERALASERTIB
     Indication: NEOPLASM
     Route: 048
     Dates: start: 20161222, end: 20161228
  48. AZD6738 [Suspect]
     Active Substance: CERALASERTIB
     Indication: NEOPLASM
     Route: 048
     Dates: start: 20170128, end: 20170201
  49. AZD6738 [Suspect]
     Active Substance: CERALASERTIB
     Indication: NEOPLASM
     Route: 048
     Dates: start: 20170310, end: 20170314
  50. AZD6738 [Suspect]
     Active Substance: CERALASERTIB
     Indication: NEOPLASM
     Route: 048
     Dates: start: 20170630, end: 20170706
  51. OLAPARIB. [Suspect]
     Active Substance: OLAPARIB
     Indication: NEOPLASM
     Route: 048
     Dates: start: 20170125, end: 20170125
  52. OLAPARIB. [Suspect]
     Active Substance: OLAPARIB
     Indication: NEOPLASM
     Route: 048
     Dates: start: 20170128, end: 20170201
  53. OLAPARIB. [Suspect]
     Active Substance: OLAPARIB
     Indication: NEOPLASM
     Route: 048
     Dates: start: 20170218, end: 20170218
  54. OLAPARIB. [Suspect]
     Active Substance: OLAPARIB
     Indication: NEOPLASM
     Route: 048
     Dates: start: 20170310, end: 20170406
  55. OLAPARIB. [Suspect]
     Active Substance: OLAPARIB
     Indication: NEOPLASM
     Route: 048
     Dates: start: 20170728, end: 20170809
  56. OLAPARIB. [Suspect]
     Active Substance: OLAPARIB
     Indication: NEOPLASM
     Route: 048
     Dates: start: 20170810, end: 20170810
  57. OLAPARIB. [Suspect]
     Active Substance: OLAPARIB
     Indication: NEOPLASM
     Route: 048
     Dates: start: 20171026, end: 20171101
  58. ANYCOUGH [Concomitant]
     Active Substance: THEOBROMINE
     Indication: UPPER RESPIRATORY TRACT INFECTION
     Route: 048
     Dates: start: 20161227, end: 20170102
  59. AZD6738 [Suspect]
     Active Substance: CERALASERTIB
     Indication: NEOPLASM
     Route: 048
     Dates: start: 20161124, end: 20161130
  60. AZD6738 [Suspect]
     Active Substance: CERALASERTIB
     Indication: NEOPLASM
     Route: 048
     Dates: start: 20170407, end: 20170413
  61. OLAPARIB. [Suspect]
     Active Substance: OLAPARIB
     Indication: NEOPLASM
     Route: 048
     Dates: start: 20161222, end: 20170102
  62. OLAPARIB. [Suspect]
     Active Substance: OLAPARIB
     Indication: NEOPLASM
     Route: 048
     Dates: start: 20170203, end: 20170215
  63. OLAPARIB. [Suspect]
     Active Substance: OLAPARIB
     Indication: NEOPLASM
     Route: 048
     Dates: start: 20170518, end: 20170518
  64. OLAPARIB. [Suspect]
     Active Substance: OLAPARIB
     Indication: NEOPLASM
     Route: 048
     Dates: start: 20170630, end: 20170711
  65. OLAPARIB. [Suspect]
     Active Substance: OLAPARIB
     Indication: NEOPLASM
     Route: 048
     Dates: start: 20180517, end: 20180613
  66. CHLORHEXIDINE GLUCONATE. [Concomitant]
     Active Substance: CHLORHEXIDINE GLUCONATE
     Indication: STOMATITIS
     Dosage: 100.0ML AS REQUIRED
     Route: 002
     Dates: start: 20170105
  67. OLAPARIB. [Suspect]
     Active Substance: OLAPARIB
     Indication: NEOPLASM
     Route: 048
     Dates: start: 20170505, end: 20170517
  68. OLAPARIB. [Suspect]
     Active Substance: OLAPARIB
     Indication: NEOPLASM
     Route: 048
     Dates: start: 20170825, end: 20170921
  69. OLAPARIB. [Suspect]
     Active Substance: OLAPARIB
     Indication: NEOPLASM
     Route: 048
     Dates: start: 20170922, end: 20171019

REACTIONS (2)
  - Febrile neutropenia [Recovered/Resolved]
  - Pneumonia [Recovered/Resolved]

NARRATIVE: CASE EVENT DATE: 20170101
